FAERS Safety Report 17829144 (Version 1)
Quarter: 2020Q2

REPORT INFORMATION
  Report Type: Spontaneous
  Country: US (occurrence: US)
  Receive Date: 20200527
  Receipt Date: 20200527
  Transmission Date: 20200714
  Serious: Yes (Life-Threatening, Other)
  Sender: FDA-Public Use
  Company Number: None

PATIENT
  Age: 80 Year
  Sex: Male
  Weight: 91.3 kg

DRUGS (7)
  1. DEFINITY 2 ML ONCE IV [Concomitant]
     Dates: start: 20200526
  2. TC-MYOVIEW 6.36 MILLICURIE AND 19.8 MILLICURIE ONCE IV [Concomitant]
     Dates: start: 20200526
  3. PANTOPRAZOLE DR 40 MG PO QD [Concomitant]
     Dates: start: 20200524
  4. SENNA-DOCUSATE 8.6-50 MG TABLET PO BID [Concomitant]
     Dates: start: 20200525
  5. LEXISCAN 0.4 MG ONCE IV [Concomitant]
     Dates: start: 20200526
  6. FERRLECIT [Suspect]
     Active Substance: SODIUM FERRIC GLUCONATE COMPLEX
     Indication: IRON DEFICIENCY ANAEMIA
     Route: 041
     Dates: start: 20200525, end: 20200526
  7. CLOPIDOGREL 75 MG PO QD [Concomitant]
     Dates: start: 20200525

REACTIONS (5)
  - Bradycardia [None]
  - Infusion related reaction [None]
  - Dizziness [None]
  - Hypotension [None]
  - Hyperhidrosis [None]

NARRATIVE: CASE EVENT DATE: 20200526
